FAERS Safety Report 9576663 (Version 1)
Quarter: 2013Q4

REPORT INFORMATION
  Report Type: Spontaneous
  Country: US (occurrence: US)
  Receive Date: 20131001
  Receipt Date: 20131001
  Transmission Date: 20140711
  Serious: No
  Sender: FDA-Public Use
  Company Number: US-AMGEN-USASP2013004189

PATIENT
  Sex: Female
  Weight: 61.22 kg

DRUGS (9)
  1. ENBREL [Suspect]
     Indication: RHEUMATOID ARTHRITIS
     Dosage: 50 MG, QWK
     Route: 058
  2. GLUCOSAMINE [Concomitant]
     Dosage: 500 MG, UNK
  3. IBUPROFEN [Concomitant]
     Dosage: 200 MG, UNK
  4. VITAMIN E                          /00110501/ [Concomitant]
     Dosage: 100 UNIT, UNK
  5. MSM [Concomitant]
     Dosage: 1000 MG, UNK
  6. MULTIVITAMINS, PLAIN [Concomitant]
     Dosage: UNK
  7. DEVIL^S CLAW [Concomitant]
     Dosage: UNK
  8. CALCIUM + VIT D [Concomitant]
     Dosage: UNK
  9. VITAMIN C                          /00008001/ [Concomitant]
     Dosage: 500 MG, UNK

REACTIONS (2)
  - Urinary tract infection [Unknown]
  - Injection site pain [Unknown]
